FAERS Safety Report 20176104 (Version 1)
Quarter: 2021Q4

REPORT INFORMATION
  Report Type: Spontaneous
  Country: JP (occurrence: JP)
  Receive Date: 20211213
  Receipt Date: 20211213
  Transmission Date: 20220303
  Serious: Yes (Hospitalization)
  Sender: FDA-Public Use
  Company Number: JP-MYOVANT SCIENCES GMBH-2021MYSCI1100639

PATIENT
  Sex: Female

DRUGS (1)
  1. RELUGOLIX [Suspect]
     Active Substance: RELUGOLIX
     Indication: Uterine leiomyoma
     Dosage: 40 MILLIGRAM, QD
     Route: 048

REACTIONS (1)
  - Intermenstrual bleeding [Unknown]
